FAERS Safety Report 16600973 (Version 1)
Quarter: 2019Q3

REPORT INFORMATION
  Report Type: Spontaneous
  Country: PL (occurrence: PL)
  Receive Date: 20190719
  Receipt Date: 20190719
  Transmission Date: 20191004
  Serious: Yes (Other)
  Sender: FDA-Public Use
  Company Number: PL-OTSUKA-2019_026398

PATIENT
  Age: 57 Year
  Sex: Female

DRUGS (3)
  1. RISPOLEPT [Suspect]
     Active Substance: RISPERIDONE
     Indication: SCHIZOPHRENIA
     Dosage: UNK
     Route: 048
  2. EUTHYROX [Concomitant]
     Active Substance: LEVOTHYROXINE SODIUM
     Indication: SCHIZOPHRENIA
     Dosage: UNK
     Route: 048
  3. ABILIFY [Suspect]
     Active Substance: ARIPIPRAZOLE
     Indication: SCHIZOPHRENIA
     Dosage: UNK
     Route: 048

REACTIONS (5)
  - Hyperhidrosis [Recovered/Resolved]
  - Anal incontinence [Unknown]
  - Feeling hot [Recovering/Resolving]
  - Trismus [Recovered/Resolved]
  - Blood pressure increased [Recovered/Resolved]
